FAERS Safety Report 20832747 (Version 40)
Quarter: 2024Q4

REPORT INFORMATION
  Report Type: Spontaneous
  Country: CA (occurrence: CA)
  Receive Date: 20220516
  Receipt Date: 20241115
  Transmission Date: 20250114
  Serious: Yes (Hospitalization, Other)
  Sender: CELLTRION
  Company Number: CA-CELLTRION INC.-2022CA006552

PATIENT

DRUGS (32)
  1. INFLECTRA [Suspect]
     Active Substance: INFLIXIMAB-DYYB
     Indication: Crohn^s disease
     Dosage: 5 MG/KG, 0, 2, 6, THEN EVERY 8 WEEKS
     Route: 042
     Dates: start: 20220324
  2. INFLECTRA [Suspect]
     Active Substance: INFLIXIMAB-DYYB
     Dosage: 5 MG/KG, 0, 2, 6, THEN EVERY 8 WEEKS
     Route: 042
     Dates: start: 20220407
  3. INFLECTRA [Suspect]
     Active Substance: INFLIXIMAB-DYYB
     Dosage: 5 MG/KG, 0, 2, 6, THEN EVERY 8 WEEKS
     Route: 042
     Dates: start: 20220505
  4. INFLECTRA [Suspect]
     Active Substance: INFLIXIMAB-DYYB
     Dosage: 5 MG/KG, 0, 2, 6, THEN EVERY 8 WEEKS
     Route: 042
     Dates: start: 20220630
  5. INFLECTRA [Suspect]
     Active Substance: INFLIXIMAB-DYYB
     Dosage: 5 MG/KG, 0, 2, 6, THEN EVERY 8 WEEKS
     Route: 042
     Dates: start: 20221019
  6. INFLECTRA [Suspect]
     Active Substance: INFLIXIMAB-DYYB
     Dosage: 5 MG/KG, 0, 2, 6, THEN EVERY 8 WEEKS
     Route: 042
     Dates: start: 20221216
  7. INFLECTRA [Suspect]
     Active Substance: INFLIXIMAB-DYYB
     Dosage: 5 MG/KG, 0, 2, 6, THEN EVERY 8 WEEKS
     Route: 042
     Dates: start: 20221216
  8. INFLECTRA [Suspect]
     Active Substance: INFLIXIMAB-DYYB
     Dosage: 5 MG/KG, 0, 2, 6, THEN EVERY 8 WEEKS
     Route: 042
     Dates: start: 20221216
  9. INFLECTRA [Suspect]
     Active Substance: INFLIXIMAB-DYYB
     Dosage: 5 MG/KG, EVERY 4 WEEKS
     Route: 042
     Dates: start: 20230118
  10. INFLECTRA [Suspect]
     Active Substance: INFLIXIMAB-DYYB
     Dosage: 5 MG/KG (590 MG), EVERY 4 WEEKS
     Route: 042
     Dates: start: 20230213
  11. INFLECTRA [Suspect]
     Active Substance: INFLIXIMAB-DYYB
     Dosage: 5 MG/KG (600 MG), EVERY 4 WEEKS
     Route: 042
     Dates: start: 20230313
  12. INFLECTRA [Suspect]
     Active Substance: INFLIXIMAB-DYYB
     Dosage: 5 MG/KG (600 MG), EVERY 4 WEEKS
     Route: 042
     Dates: start: 20230412
  13. INFLECTRA [Suspect]
     Active Substance: INFLIXIMAB-DYYB
     Dosage: 5 MG/KG, EVERY 4 WEEKS
     Route: 042
     Dates: start: 20230510
  14. INFLECTRA [Suspect]
     Active Substance: INFLIXIMAB-DYYB
     Dosage: 5 MG/KG (600 MG), AFTER 4 WEEKS (20 MG SHORT OF EXACT DOSE)
     Route: 042
     Dates: start: 20230605
  15. INFLECTRA [Suspect]
     Active Substance: INFLIXIMAB-DYYB
     Dosage: 5 MG/KG (630 MG), EVERY 4 WEEKS
     Route: 042
     Dates: start: 20230705
  16. INFLECTRA [Suspect]
     Active Substance: INFLIXIMAB-DYYB
     Dosage: UNK, (UNSPECIFIED DOSE AND FREQUENCY)
     Route: 042
     Dates: start: 20230802
  17. INFLECTRA [Suspect]
     Active Substance: INFLIXIMAB-DYYB
     Dosage: 5 MG/KG (630 MG), EVERY 3 WEEKS AND 5 DAYS
     Route: 042
     Dates: start: 20230828
  18. INFLECTRA [Suspect]
     Active Substance: INFLIXIMAB-DYYB
     Dosage: 5 MG/KG, EVERY 4 WEEKS
     Route: 042
     Dates: start: 20230927
  19. INFLECTRA [Suspect]
     Active Substance: INFLIXIMAB-DYYB
     Dosage: 600 MG, 3 WEEKS AND 5 DAYS
     Route: 042
     Dates: start: 20231023
  20. INFLECTRA [Suspect]
     Active Substance: INFLIXIMAB-DYYB
     Dosage: 5 MG/KG, EVERY 4 WEEKS (605 MG, 5 WEEKS AND 3 DAYS)
     Route: 042
     Dates: start: 20231130
  21. INFLECTRA [Suspect]
     Active Substance: INFLIXIMAB-DYYB
     Dosage: 10 MG/KG, EVERY 4 WEEKS (1230 MG, AFTER 5 WEEKS)
     Route: 042
     Dates: start: 20240104
  22. INFLECTRA [Suspect]
     Active Substance: INFLIXIMAB-DYYB
     Dosage: 10 MG/KG, EVERY 4 WEEK (1290 MG, 4 WEEKS)
     Route: 042
     Dates: start: 20240201
  23. INFLECTRA [Suspect]
     Active Substance: INFLIXIMAB-DYYB
     Dosage: 10 MG/KG, EVERY 4 WEEK (1300 MG, EVERY 4 WEEKS)
     Route: 042
     Dates: start: 20240301
  24. INFLECTRA [Suspect]
     Active Substance: INFLIXIMAB-DYYB
     Dosage: 10 MG/KG, EVERY 4 WEEK (1290MG, 3 WEEKS AND 5 DAYS)
     Route: 042
     Dates: start: 20240327
  25. INFLECTRA [Suspect]
     Active Substance: INFLIXIMAB-DYYB
     Dosage: 10 MG/KG, EVERY 4 WEEK (1300 MG, AFTER 4 WEEKS AND 2 DAYS)
     Route: 042
     Dates: start: 20240426
  26. INFLECTRA [Suspect]
     Active Substance: INFLIXIMAB-DYYB
     Dosage: 10 MG/KG, EVERY 4 WEEK (1300 MG,  4 WEEKS)
     Route: 042
     Dates: start: 20240524
  27. INFLECTRA [Suspect]
     Active Substance: INFLIXIMAB-DYYB
     Dosage: 10 MG/KG, EVERY 4 WEEK (1300 MG 3 WEEKS AND 5 DAYS)
     Route: 042
     Dates: start: 20240619
  28. INFLECTRA [Suspect]
     Active Substance: INFLIXIMAB-DYYB
     Dosage: 1300 MG, (10 MG/KG, EVERY 4 WEEK )
     Route: 042
     Dates: start: 20240717
  29. INFLECTRA [Suspect]
     Active Substance: INFLIXIMAB-DYYB
     Dosage: 10 MG/KG, EVERY 4 WEEKS
     Route: 042
     Dates: start: 20240814
  30. INFLECTRA [Suspect]
     Active Substance: INFLIXIMAB-DYYB
     Dosage: 1300 MG, 4 WEEKS (10 MG/KG, EVERY 4 WEEK )
     Route: 042
     Dates: start: 20240911
  31. INFLECTRA [Suspect]
     Active Substance: INFLIXIMAB-DYYB
     Dosage: 1300 MG, (10 MG/KG, EVERY 4 WEEK )
     Route: 042
     Dates: start: 20241010
  32. INFLECTRA [Suspect]
     Active Substance: INFLIXIMAB-DYYB
     Dosage: 1300 MG, (10 MG/KG, EVERY 4 WEEK )
     Route: 042
     Dates: start: 20241106

REACTIONS (16)
  - Anal fistula [Recovering/Resolving]
  - Anal abscess [Recovering/Resolving]
  - Condition aggravated [Not Recovered/Not Resolved]
  - Abscess [Recovered/Resolved]
  - Ostomy bag placement [Unknown]
  - Infected fistula [Not Recovered/Not Resolved]
  - Wound [Unknown]
  - Drug level decreased [Unknown]
  - Erythema nodosum [Recovered/Resolved]
  - Malaise [Not Recovered/Not Resolved]
  - Anal fissure [Recovered/Resolved]
  - Arthralgia [Not Recovered/Not Resolved]
  - Anorectal infection [Not Recovered/Not Resolved]
  - Condition aggravated [Recovering/Resolving]
  - Inappropriate schedule of product administration [Unknown]
  - Off label use [Unknown]

NARRATIVE: CASE EVENT DATE: 20220101
